FAERS Safety Report 17153686 (Version 1)
Quarter: 2019Q4

REPORT INFORMATION
  Report Type: Spontaneous
  Country: US (occurrence: US)
  Receive Date: 20191213
  Receipt Date: 20191213
  Transmission Date: 20200122
  Serious: Yes (Hospitalization, Disabling, Other)
  Sender: FDA-Public Use
  Company Number: US-REGENERON PHARMACEUTICALS, INC.-2019-71735

PATIENT

DRUGS (1)
  1. EYLEA [Suspect]
     Active Substance: AFLIBERCEPT
     Indication: RETINAL HAEMORRHAGE
     Dosage: INITIALLY ONCE A MONTH THEN ^ERRATIC^, RIGHT EYE
     Route: 031
     Dates: start: 201710, end: 20190628

REACTIONS (9)
  - Administration site pain [Unknown]
  - Ocular hyperaemia [Unknown]
  - Intraocular pressure increased [Unknown]
  - Cataract [Unknown]
  - Retinal detachment [Unknown]
  - Facial pain [Unknown]
  - Blindness unilateral [Unknown]
  - Eye haemorrhage [Unknown]
  - Eye disorder [Unknown]
